FAERS Safety Report 4594091-5 (Version None)
Quarter: 2005Q1

REPORT INFORMATION
  Report Type: 
  Country: None (occurrence: None)
  Receive Date: 20050223
  Receipt Date: 20050209
  Transmission Date: 20050727
  Serious: Yes (Death, Other)
  Sender: FDA-Public Use
  Company Number: US-2004-028869

PATIENT
  Age: 60 Year
  Sex: Male
  Weight: 108.4 kg

DRUGS (10)
  1. CAMPATH [Suspect]
     Indication: CHRONIC LYMPHOCYTIC LEUKAEMIA
     Dosage: 3 MG, 1 DOSE, INTRAVENOUS
     Route: 042
     Dates: start: 20040518, end: 20040518
  2. TYLENOL (CAPLET) [Concomitant]
  3. BENADRYL ^ACHE^ (MENTHOL, AMMONIUM CHLORIDE, DIPHENHYDRAMINE HYDROCHLO [Concomitant]
  4. HYDROCHLOROZIDE [Concomitant]
  5. ATENOLOL [Concomitant]
  6. DOCUSATE SODIUM (DOCUSATE SODIUM) [Concomitant]
  7. GANCICLOVIR SODIUM [Concomitant]
  8. SELENIUM SULFIDE (SELENIUM SULFIDE) [Concomitant]
  9. SENNOSIDE A (SENNOSIDE A) [Concomitant]
  10. SULFAMETHOXAZOLE W/ TRIMETHOPRIUM [Concomitant]

REACTIONS (8)
  - ABDOMINAL DISTENSION [None]
  - BLOOD PRESSURE INCREASED [None]
  - CEREBROVASCULAR ACCIDENT [None]
  - CHILLS [None]
  - FEELING COLD [None]
  - LOSS OF CONSCIOUSNESS [None]
  - OEDEMA PERIPHERAL [None]
  - RESPIRATORY ARREST [None]
